FAERS Safety Report 7354991-X (Version None)
Quarter: 2011Q1

REPORT INFORMATION
  Report Type: 
  Country: None (occurrence: None)
  Receive Date: 20110316
  Receipt Date: 20110304
  Transmission Date: 20110831
  Serious: Yes (Death, Hospitalization)
  Sender: FDA-Public Use
  Company Number: US-PFIZER INC-2009187789

PATIENT
  Sex: Female
  Weight: 50 kg

DRUGS (4)
  1. BONIVA [Suspect]
     Dosage: 3 MG, Q 3 MOS, IV PUSH
     Route: 042
     Dates: start: 20080326, end: 20090114
  2. METOPROLOL [Concomitant]
     Dosage: 150 MG, UNK
     Route: 048
     Dates: start: 20090324
  3. EXEMESTANE [Suspect]
     Indication: BREAST CANCER
     Dosage: 25 MG, 1X/DAY
     Route: 048
     Dates: start: 20050322
  4. DIGOXIN [Concomitant]
     Dosage: 250 MG, 1X/DAY
     Route: 048
     Dates: start: 20090324

REACTIONS (2)
  - CARDIAC FAILURE CONGESTIVE [None]
  - ATRIAL FIBRILLATION [None]
